FAERS Safety Report 10454966 (Version 1)
Quarter: 2014Q3

REPORT INFORMATION
  Report Type: Report from Study
  Country: BR (occurrence: BR)
  Receive Date: 20140915
  Receipt Date: 20140915
  Transmission Date: 20150326
  Serious: Yes (Hospitalization, Other)
  Sender: FDA-Public Use
  Company Number: PHHY2014BR119214

PATIENT
  Sex: Female

DRUGS (2)
  1. TORVAL [Suspect]
     Active Substance: VALPROIC ACID
     Dosage: UNK
  2. EXELON PATCH [Suspect]
     Active Substance: RIVASTIGMINE
     Dosage: 1 DF, Q12H (1 ADHESIVE/12 HOURS)
     Route: 062
     Dates: start: 201401

REACTIONS (2)
  - Kidney infection [Unknown]
  - Lung infection [Unknown]
